FAERS Safety Report 21686451 (Version 1)
Quarter: 2022Q4

REPORT INFORMATION
  Report Type: Other
  Country: FR (occurrence: FR)
  Receive Date: 20221206
  Receipt Date: 20221206
  Transmission Date: 20230113
  Serious: Yes (Hospitalization)
  Sender: FDA-Public Use
  Company Number: None

PATIENT

DRUGS (1)
  1. ENTECAVIR [Suspect]
     Active Substance: ENTECAVIR
     Indication: Antiviral prophylaxis
     Dosage: 4 MILLIGRAM, QD
     Route: 065
     Dates: start: 20220920, end: 20220926

REACTIONS (3)
  - Haematoma [Recovering/Resolving]
  - Haemoglobin decreased [Recovering/Resolving]
  - Product prescribing error [Unknown]

NARRATIVE: CASE EVENT DATE: 20220920
